FAERS Safety Report 9758449 (Version 2)
Quarter: 2014Q1

REPORT INFORMATION
  Report Type: Spontaneous
  Country: US (occurrence: US)
  Receive Date: 20131216
  Receipt Date: 20140121
  Transmission Date: 20141002
  Serious: No
  Sender: FDA-Public Use
  Company Number: US-TEVA-449949USA

PATIENT
  Sex: Male

DRUGS (1)
  1. NUVIGIL [Suspect]

REACTIONS (1)
  - Drug ineffective [Unknown]
